FAERS Safety Report 10277756 (Version 1)
Quarter: 2014Q3

REPORT INFORMATION
  Report Type: Report from Study
  Country: US (occurrence: US)
  Receive Date: 20140704
  Receipt Date: 20140704
  Transmission Date: 20150326
  Serious: Yes (Other)
  Sender: FDA-Public Use
  Company Number: US-ROCHE-1372782

PATIENT
  Sex: Female
  Weight: 75.9 kg

DRUGS (12)
  1. XOLAIR [Suspect]
     Active Substance: OMALIZUMAB
     Indication: ASTHMA
     Route: 058
  2. AMITRIPTYLINE [Concomitant]
     Active Substance: AMITRIPTYLINE
  3. ALBUTEROL. [Concomitant]
     Active Substance: ALBUTEROL
  4. RHINOCORT [Concomitant]
     Active Substance: BUDESONIDE
  5. FEXOFENADINE [Concomitant]
     Active Substance: FEXOFENADINE\FEXOFENADINE HYDROCHLORIDE
  6. THEOPHYLLINE [Concomitant]
     Active Substance: THEOPHYLLINE
  7. GABAPENTIN. [Concomitant]
     Active Substance: GABAPENTIN
  8. FROVA [Concomitant]
     Active Substance: FROVATRIPTAN SUCCINATE
  9. XYZAL [Concomitant]
     Active Substance: LEVOCETIRIZINE DIHYDROCHLORIDE
  10. REPARIL (INJECTION) [Concomitant]
  11. SINGULAIR [Concomitant]
     Active Substance: MONTELUKAST SODIUM
  12. NEXIUM [Concomitant]
     Active Substance: ESOMEPRAZOLE MAGNESIUM

REACTIONS (1)
  - Anaphylactic reaction [Unknown]
